FAERS Safety Report 9719030 (Version 1)
Quarter: 2013Q4

REPORT INFORMATION
  Report Type: Spontaneous
  Country: AT (occurrence: None)
  Receive Date: 20131126
  Receipt Date: 20131126
  Transmission Date: 20140711
  Serious: Yes (Disabling)
  Sender: FDA-Public Use
  Company Number: 2013DEPAT00584

PATIENT
  Age: 18 Year
  Sex: Male

DRUGS (4)
  1. DEPOCYT [Suspect]
     Indication: ACUTE LYMPHOCYTIC LEUKAEMIA
     Dosage: 50 MG, SINGLE, INTRATHECAL
     Route: 037
     Dates: start: 20131105, end: 20131105
  2. DOXORUBICINE [Concomitant]
  3. VINDESINE (VINDESINE) [Concomitant]
  4. PREDNISOLON (PREDNISOLONE SODIUM PHOSPHATE) [Concomitant]

REACTIONS (2)
  - Diplopia [None]
  - Visual impairment [None]
